FAERS Safety Report 10667080 (Version 2)
Quarter: 2015Q1

REPORT INFORMATION
  Report Type: Spontaneous
  Country: US (occurrence: None)
  Receive Date: 20141218
  Receipt Date: 20150105
  Transmission Date: 20150720
  Serious: Yes (Disabling, Other)
  Sender: FDA-Public Use
  Company Number: 2014COV00180

PATIENT
  Age: 55 Year
  Sex: Male
  Weight: 104.3 kg

DRUGS (14)
  1. DEXLANSOPRAZOLE [Concomitant]
     Active Substance: DEXLANSOPRAZOLE
  2. DUTOPROL [Suspect]
     Active Substance: HYDROCHLOROTHIAZIDE\METOPROLOL SUCCINATE
     Indication: HYPERTENSION
     Route: 048
  3. HUMIRA [Suspect]
     Active Substance: ADALIMUMAB
     Dosage: 2X/MONTH
     Route: 051
     Dates: start: 201403, end: 2014
  4. GABAPENTIN. [Concomitant]
     Active Substance: GABAPENTIN
  5. LOSARTAN POTASSIUM. [Concomitant]
     Active Substance: LOSARTAN POTASSIUM
  6. TOPROL XL [Suspect]
     Active Substance: METOPROLOL SUCCINATE
     Indication: HYPERTENSION
     Route: 048
     Dates: start: 201303, end: 201403
  7. PERCOCET [Concomitant]
     Active Substance: ACETAMINOPHEN\OXYCODONE HYDROCHLORIDE
  8. PREDNISONE. [Concomitant]
     Active Substance: PREDNISONE
  9. TOPROL XL [Suspect]
     Active Substance: METOPROLOL SUCCINATE
     Indication: BLOOD PRESSURE
     Route: 048
     Dates: start: 201303, end: 201403
  10. TIZANIDINE HYDROCHLORIDE. [Concomitant]
     Active Substance: TIZANIDINE HYDROCHLORIDE
  11. AMLODIPINE BESYLATE. [Concomitant]
     Active Substance: AMLODIPINE BESYLATE
  12. HYDROCHLORATHIAZIDE [Concomitant]
     Active Substance: HYDROCHLOROTHIAZIDE
  13. CLONIDINE. [Concomitant]
     Active Substance: CLONIDINE
  14. CITALOPRAM HYDROBROMIDE. [Concomitant]
     Active Substance: CITALOPRAM HYDROBROMIDE

REACTIONS (8)
  - Anxiety [None]
  - Rash [None]
  - Cough [None]
  - Drug dose omission [None]
  - Dyskinesia [None]
  - Hypertension [None]
  - Intestinal obstruction [None]
  - Tremor [None]

NARRATIVE: CASE EVENT DATE: 2010
